FAERS Safety Report 9119406 (Version 1)
Quarter: 2013Q1

REPORT INFORMATION
  Report Type: Spontaneous
  Country: US (occurrence: US)
  Receive Date: 20130207
  Receipt Date: 20130207
  Transmission Date: 20140127
  Serious: Yes (Death)
  Sender: FDA-Public Use
  Company Number: CHPA2013US002576

PATIENT
  Age: 41 Year
  Sex: Female

DRUGS (6)
  1. SENNA [Suspect]
     Dosage: UNK, UNK
     Route: 048
  2. QUETIAPINE [Suspect]
     Dosage: UNK, UNK
     Route: 048
  3. TRAMADOL [Suspect]
     Dosage: UNK, UNK
     Route: 048
  4. ALPRAZOLAM [Suspect]
     Dosage: UNK, UNK
     Route: 048
  5. CLONAZEPAM [Suspect]
     Dosage: UNK, UNK
     Route: 048
  6. ETHANOL [Suspect]
     Dosage: UNK, UNK
     Route: 048

REACTIONS (1)
  - Completed suicide [Fatal]
